FAERS Safety Report 4441807-4 (Version None)
Quarter: 2004Q3

REPORT INFORMATION
  Report Type: 
  Country: None (occurrence: None)
  Receive Date: 20040901
  Receipt Date: 20040817
  Transmission Date: 20050211
  Serious: Yes (Life-Threatening)
  Sender: FDA-Public Use
  Company Number: ZANA001338

PATIENT
  Age: 79 Year
  Sex: Male

DRUGS (2)
  1. TIZANIDINE HCL [Suspect]
     Indication: OSTEOARTHRITIS
     Dosage: 2 MG DAILY ORAL
     Route: 048
     Dates: start: 20040421, end: 20040421
  2. IBUPROFEN [Concomitant]

REACTIONS (1)
  - HYPOTENSION [None]
